FAERS Safety Report 6559828 (Version 2)
Quarter: 2013Q2

REPORT INFORMATION
  Report Type: Spontaneous
  Country: US (occurrence: US)
  Receive Date: 20080225
  Receipt Date: 20130605
  Transmission Date: 20140414
  Serious: Yes (Death, Life-Threatening, Hospitalization, Other)
  Sender: FDA-Public Use
  Company Number: US-RB-000007-08

PATIENT
  Age: 58 Year
  Sex: Male

DRUGS (6)
  1. SUBOXONE TABLET [Suspect]
     Indication: DRUG DEPENDENCE
     Route: 060
     Dates: start: 20080207
  2. CARDIAC CATHETERIZATION DYE [Suspect]
     Dosage: UNKNOWN DOSE
     Route: 040
     Dates: start: 20080204, end: 20080204
  3. CARDIAC CATHETERIZATION DYE [Suspect]
     Indication: CATHETERISATION CARDIAC
     Dosage: UNKNOWN DOSE
     Route: 040
     Dates: start: 20080206, end: 20080206
  4. PLAVIX [Concomitant]
     Indication: CORONARY ARTERY DISEASE
     Route: 048
  5. RISPERDAL [Concomitant]
     Indication: PRODUCT USED FOR UNKNOWN INDICATION
     Route: 048
  6. ADVAIR [Concomitant]
     Indication: PRODUCT USED FOR UNKNOWN INDICATION
     Route: 055

REACTIONS (5)
  - Renal failure acute [Recovered/Resolved]
  - Lethargy [Recovered/Resolved]
  - Sepsis syndrome [Fatal]
  - Pneumonia [Fatal]
  - Cardiac arrest [Fatal]
